FAERS Safety Report 8547516-4 (Version None)
Quarter: 2012Q3

REPORT INFORMATION
  Report Type: 
  Country: None (occurrence: None)
  Receive Date: 20120727
  Receipt Date: 20120327
  Transmission Date: 20120928
  Serious: No
  Sender: FDA-Public Use
  Company Number: US-ASTRAZENECA-2012SE20798

PATIENT
  Age: 57 Year
  Sex: Female
  Weight: 77.6 kg

DRUGS (3)
  1. SEROQUEL [Suspect]
     Route: 048
     Dates: start: 20120317
  2. SEROQUEL [Suspect]
     Indication: BIPOLAR I DISORDER
     Route: 048
     Dates: start: 20111228, end: 20120101
  3. NEXIUM [Suspect]
     Route: 048

REACTIONS (1)
  - EXTRASYSTOLES [None]
